FAERS Safety Report 7063064-5 (Version None)
Quarter: 2010Q4

REPORT INFORMATION
  Report Type: 
  Country: None (occurrence: None)
  Receive Date: 20101026
  Receipt Date: 20100414
  Transmission Date: 20110411
  Serious: Yes (Other)
  Sender: FDA-Public Use
  Company Number: US-PFIZER INC-2010047569

PATIENT
  Age: 61 Year
  Sex: Female

DRUGS (3)
  1. LIPITOR [Suspect]
     Dosage: 20 MG, UNK
  2. HYZAAR [Suspect]
     Dosage: 100/25, UNK
  3. PREMARIN [Suspect]
     Dosage: 0.3 MG, UNK

REACTIONS (2)
  - MALAISE [None]
  - MUSCLE SPASMS [None]
